FAERS Safety Report 11369141 (Version 32)
Quarter: 2017Q3

REPORT INFORMATION
  Report Type: Report from Study
  Country: CA (occurrence: CA)
  Receive Date: 20150812
  Receipt Date: 20170807
  Transmission Date: 20171127
  Serious: Yes (Hospitalization, Other)
  Sender: FDA-Public Use
  Company Number: PHHY2014CA044448

PATIENT
  Age: 79 Year
  Sex: Male

DRUGS (12)
  1. SANDOSTATIN LAR DEPOT [Suspect]
     Active Substance: OCTREOTIDE ACETATE
     Indication: NEUROENDOCRINE CARCINOMA
     Dosage: 20 MG, QMO (EVERY 4 WEEKS)
     Route: 030
     Dates: start: 20140314
  2. SANDOSTATIN LAR DEPOT [Suspect]
     Active Substance: OCTREOTIDE ACETATE
     Dosage: 30 MG, QMO (EVERY 4 WEEKS)
     Route: 030
  3. ADALAT [Concomitant]
     Active Substance: NIFEDIPINE
     Indication: PRODUCT USED FOR UNKNOWN INDICATION
     Dosage: 30 MG, UNK
     Route: 065
  4. WARFARIN [Concomitant]
     Active Substance: WARFARIN
     Indication: PRODUCT USED FOR UNKNOWN INDICATION
     Dosage: 2 MG, QD
     Route: 065
     Dates: start: 2016
  5. SANDOSTATIN LAR DEPOT [Suspect]
     Active Substance: OCTREOTIDE ACETATE
     Dosage: UNK
     Route: 030
     Dates: start: 20170413
  6. SUCRALFATE. [Concomitant]
     Active Substance: SUCRALFATE
     Indication: PRODUCT USED FOR UNKNOWN INDICATION
     Dosage: 1 OT,(TEA SPOON)
     Route: 048
  7. SANDOSTATIN LAR DEPOT [Suspect]
     Active Substance: OCTREOTIDE ACETATE
     Dosage: 30 MG, EVERY 2 WEEKS
     Route: 030
     Dates: start: 20161013
  8. ONDANSETRON [Concomitant]
     Active Substance: ONDANSETRON
     Indication: PRODUCT USED FOR UNKNOWN INDICATION
     Dosage: 8 MG, Q8H
     Route: 060
  9. SPIRONOLACTONE. [Concomitant]
     Active Substance: SPIRONOLACTONE
     Indication: PRODUCT USED FOR UNKNOWN INDICATION
     Dosage: 25 MG, QD
     Route: 065
  10. SANDOSTATIN LAR DEPOT [Suspect]
     Active Substance: OCTREOTIDE ACETATE
     Dosage: 30 MG, EVERY 2 WEEKS
     Route: 030
  11. SANDOSTATIN LAR DEPOT [Suspect]
     Active Substance: OCTREOTIDE ACETATE
     Dosage: 30 MG, QMO (EVERY 4 WEEKS)
     Route: 030
  12. ELIQUIS [Concomitant]
     Active Substance: APIXABAN
     Indication: PRODUCT USED FOR UNKNOWN INDICATION
     Dosage: 2.5 MG, BID
     Route: 065
     Dates: start: 201610

REACTIONS (39)
  - Cardiac disorder [Unknown]
  - Skin cancer [Unknown]
  - Fluid retention [Unknown]
  - Nipple pain [Unknown]
  - Blood pressure diastolic decreased [Unknown]
  - Needle issue [Unknown]
  - Stress [Unknown]
  - Pain in extremity [Recovered/Resolved]
  - Musculoskeletal stiffness [Unknown]
  - Dizziness [Unknown]
  - Cholelithiasis [Unknown]
  - Kidney infection [Unknown]
  - Blood pressure systolic increased [Recovering/Resolving]
  - Peripheral swelling [Recovering/Resolving]
  - Eating disorder [Unknown]
  - Anxiety [Recovered/Resolved]
  - Blood pressure increased [Unknown]
  - Atrial fibrillation [Unknown]
  - Blood pressure decreased [Unknown]
  - Lymphadenopathy [Unknown]
  - Tenderness [Unknown]
  - Tremor [Unknown]
  - Renal impairment [Unknown]
  - Heart rate decreased [Unknown]
  - Erythema [Recovering/Resolving]
  - Inappropriate schedule of drug administration [Unknown]
  - Metastases to bone [Unknown]
  - Heart rate increased [Recovered/Resolved]
  - Skin discolouration [Unknown]
  - Body temperature decreased [Unknown]
  - Asthenia [Unknown]
  - Second primary malignancy [Unknown]
  - Sensory disturbance [Unknown]
  - Malignant neoplasm progression [Unknown]
  - Weight increased [Unknown]
  - Joint stiffness [Recovered/Resolved]
  - Influenza like illness [Recovered/Resolved]
  - Extrasystoles [Unknown]
  - Injection site pain [Unknown]

NARRATIVE: CASE EVENT DATE: 20140414
